FAERS Safety Report 22084823 (Version 1)
Quarter: 2023Q1

REPORT INFORMATION
  Report Type: Spontaneous
  Country: US (occurrence: US)
  Receive Date: 20230310
  Receipt Date: 20230310
  Transmission Date: 20230417
  Serious: No
  Sender: FDA-Public Use
  Company Number: US-PFIZER INC-202300094584

PATIENT
  Age: 55 Year
  Sex: Female

DRUGS (3)
  1. PAXLOVID [Suspect]
     Active Substance: NIRMATRELVIR\RITONAVIR
     Indication: COVID-19 treatment
     Dosage: UNK
     Dates: start: 20230304
  2. MUCINEX FAST MAX COLD, FLU AND SORE THROAT [Concomitant]
     Dosage: UNK
     Dates: start: 20230228, end: 20230304
  3. MUCINEX NIGHTSHIFT COLD + FLU [Concomitant]
     Dosage: UNK
     Dates: start: 20230228, end: 20230304

REACTIONS (2)
  - Headache [Not Recovered/Not Resolved]
  - Dizziness [Not Recovered/Not Resolved]

NARRATIVE: CASE EVENT DATE: 20230304
